FAERS Safety Report 5889667-9 (Version None)
Quarter: 2008Q3

REPORT INFORMATION
  Report Type: 
  Country: None (occurrence: None)
  Receive Date: 20080919
  Receipt Date: 20080916
  Transmission Date: 20090109
  Serious: Yes (Death)
  Sender: FDA-Public Use
  Company Number: JP-JNJFOC-20080904380

PATIENT
  Sex: Female

DRUGS (5)
  1. FINIBAX [Suspect]
     Indication: PERITONITIS
     Route: 041
  2. VANCOMYCIN HYDROCHLORIDE [Suspect]
     Indication: STAPHYLOCOCCAL INFECTION
     Route: 041
  3. REMINARON [Concomitant]
     Indication: PERITONITIS
     Route: 042
  4. DIPRIVAN [Concomitant]
     Indication: SEDATION
     Route: 042
  5. BISOLVAN [Concomitant]
     Indication: SPUTUM ABNORMAL
     Route: 042

REACTIONS (2)
  - SEPSIS [None]
  - TOXIC EPIDERMAL NECROLYSIS [None]
